FAERS Safety Report 19074155 (Version 1)
Quarter: 2021Q1

REPORT INFORMATION
  Report Type: Spontaneous
  Country: US (occurrence: US)
  Receive Date: 20210330
  Receipt Date: 20210330
  Transmission Date: 20210420
  Serious: Yes (Hospitalization)
  Sender: FDA-Public Use
  Company Number: US-CELGENEUS-USA-20210306727

PATIENT
  Sex: Female
  Weight: 52.66 kg

DRUGS (1)
  1. POMALYST [Suspect]
     Active Substance: POMALIDOMIDE
     Indication: PLASMA CELL MYELOMA
     Dosage: 4 MILLIGRAM
     Route: 048
     Dates: start: 202102

REACTIONS (2)
  - Neoplasm malignant [Not Recovered/Not Resolved]
  - Fungal skin infection [Not Recovered/Not Resolved]

NARRATIVE: CASE EVENT DATE: 2021
